FAERS Safety Report 22163248 (Version 18)
Quarter: 2024Q2

REPORT INFORMATION
  Report Type: Spontaneous
  Country: CA (occurrence: CA)
  Receive Date: 20230401
  Receipt Date: 20240411
  Transmission Date: 20240715
  Serious: Yes (Other)
  Sender: FDA-Public Use
  Company Number: CA-CELLTRION INC.-2023CA006523

PATIENT

DRUGS (20)
  1. INFLECTRA [Suspect]
     Active Substance: INFLIXIMAB-DYYB
     Indication: Colitis ulcerative
     Dosage: 600 MG, 0, 2, 6 THEN EVERY 8 WEEKS
     Route: 042
     Dates: start: 20230317
  2. INFLECTRA [Suspect]
     Active Substance: INFLIXIMAB-DYYB
     Dosage: 600 MG (10 MG/KG), 0, 2, 6 THEN EVERY 8 WEEKS (NIGHT) FIRST LOADING DOSE IN 2 PARTS
     Route: 040
     Dates: start: 20230319
  3. INFLECTRA [Suspect]
     Active Substance: INFLIXIMAB-DYYB
     Dosage: 10 MG/KG, EVERY 8 WEEKS (WEEK 6 DOSE)
     Route: 042
     Dates: start: 20230404
  4. INFLECTRA [Suspect]
     Active Substance: INFLIXIMAB-DYYB
     Dosage: 535 MG (10 MG/KG), AFTER 8 WEEKS
     Route: 042
     Dates: start: 20230602
  5. INFLECTRA [Suspect]
     Active Substance: INFLIXIMAB-DYYB
     Dosage: 564 MG (10 MG/KG) STAT DOSE, RELOADING W 0,2,6 AND Q4 WEEKS
     Route: 042
     Dates: start: 20230613
  6. INFLECTRA [Suspect]
     Active Substance: INFLIXIMAB-DYYB
     Dosage: 550 MG ON WEEK 2 OF REINDUCTION
     Route: 042
     Dates: start: 20230627
  7. INFLECTRA [Suspect]
     Active Substance: INFLIXIMAB-DYYB
     Dosage: 810 MG (15 MG/KG), 4 WEEKS 2 DOSES 2 WEEKS APART THEN RESUME EVERY 4 WEEK INTERVAL.
     Route: 042
     Dates: start: 20230728
  8. INFLECTRA [Suspect]
     Active Substance: INFLIXIMAB-DYYB
     Dosage: 810 MG (15 MG/KG), 4 WEEKS 2 DOSES 2 WEEKS APART, THEN RESUME EVERY 4 WEEK INTERVAL
     Route: 042
     Dates: start: 20230811
  9. INFLECTRA [Suspect]
     Active Substance: INFLIXIMAB-DYYB
     Dosage: 825 MG, AFTER 3 WEEKS AND 6 DAYS
     Route: 042
     Dates: start: 20230908
  10. INFLECTRA [Suspect]
     Active Substance: INFLIXIMAB-DYYB
     Dosage: 855 MG (15 MG/KG), 2 DOSES 2 WEEKS APART, THEN RESUME EVERY 4 WEEK INTERVAL
     Route: 042
     Dates: start: 20231004
  11. INFLECTRA [Suspect]
     Active Substance: INFLIXIMAB-DYYB
     Dosage: 15 MG/KG, 2 DOSES 2 WEEKS APART, THEN RESUME EVERY 4 WEEK INTERVAL
     Route: 042
     Dates: start: 20231030
  12. INFLECTRA [Suspect]
     Active Substance: INFLIXIMAB-DYYB
     Dosage: 15 MG/KG, 2 DOSES 2 WEEKS APART, THEN RESUME EVERY 4 WEEK INTERVAL
     Route: 042
     Dates: start: 20231030
  13. INFLECTRA [Suspect]
     Active Substance: INFLIXIMAB-DYYB
     Dosage: 855 MG, AFTER 4 WEEKS AND 1 DAY
     Route: 042
     Dates: start: 20231123
  14. INFLECTRA [Suspect]
     Active Substance: INFLIXIMAB-DYYB
     Dosage: 885 MG, EVERY 4 WEEKS
     Route: 042
     Dates: start: 20231223
  15. INFLECTRA [Suspect]
     Active Substance: INFLIXIMAB-DYYB
     Dosage: 865.5 MG, (15 MG/KG, 2 DOSES 2 WEEKS APART, THEN RESUME EVERY 4 WEEK INTERVAL)
     Route: 042
     Dates: start: 20240124
  16. INFLECTRA [Suspect]
     Active Substance: INFLIXIMAB-DYYB
     Dosage: 900 MG, 6 WEEKS AFTER LAST INFUSION (15 MG/KG, 2 DOSES 2 WKS APART, THEN RESUME EVERY 4 WK INTERVAL)
     Route: 042
     Dates: start: 20240306
  17. INFLECTRA [Suspect]
     Active Substance: INFLIXIMAB-DYYB
     Dosage: 876 MG, AFTER 2 WEEKS AND 3 DAYS (PRESCRIBED TREATMENTS ARE EVERY 4 WEEKS)
     Route: 042
     Dates: start: 20240323, end: 20240323
  18. MESALAMINE [Concomitant]
     Active Substance: MESALAMINE
     Dosage: UNK
  19. PREDNISONE [Concomitant]
     Active Substance: PREDNISONE
     Dosage: UNK
  20. AMINOSALICYLIC ACID [Concomitant]
     Active Substance: AMINOSALICYLIC ACID
     Dosage: UNK

REACTIONS (6)
  - Therapeutic product effect incomplete [Unknown]
  - Treatment failure [Unknown]
  - Condition aggravated [Not Recovered/Not Resolved]
  - Off label use [Unknown]
  - Off label use [Unknown]
  - Inappropriate schedule of product administration [Unknown]

NARRATIVE: CASE EVENT DATE: 20230317
